FAERS Safety Report 7374655-6 (Version None)
Quarter: 2011Q1

REPORT INFORMATION
  Report Type: 
  Country: None (occurrence: None)
  Receive Date: 20110325
  Receipt Date: 20100621
  Transmission Date: 20110831
  Serious: No
  Sender: FDA-Public Use
  Company Number: US-MYLANLABS-2010S1011228

PATIENT
  Age: 29 Year
  Sex: Female
  Weight: 54.43 kg

DRUGS (11)
  1. NEXIUM [Concomitant]
     Indication: GASTROOESOPHAGEAL REFLUX DISEASE
     Dates: start: 20000101
  2. PROGRAF [Concomitant]
     Indication: LUNG TRANSPLANT
     Dates: start: 20070101
  3. PREDNISONE [Concomitant]
     Indication: LUNG TRANSPLANT
     Dates: start: 20070101
  4. CELLCEPT [Concomitant]
     Indication: LUNG TRANSPLANT
     Dates: start: 20070101
  5. TOBI [Concomitant]
     Indication: LUNG TRANSPLANT
     Route: 055
     Dates: start: 20000101
  6. GABAPENTIN [Concomitant]
     Indication: NEUROPATHY PERIPHERAL
     Dates: start: 20000101
  7. NOVOLIN /00030501/ [Concomitant]
     Indication: DIABETES MELLITUS
     Dosage: SLIDING SCALE
     Dates: start: 20000101
  8. BACTRIM [Concomitant]
     Dates: start: 20070101
  9. XYZAL [Concomitant]
     Indication: SINUSITIS
     Dates: start: 20000101
  10. FENTANYL-100 [Suspect]
     Indication: PAIN
     Dosage: CHANGEDQ72H
     Route: 062
     Dates: start: 20100101
  11. DILAUDID [Concomitant]
     Indication: BREAKTHROUGH PAIN
     Dates: start: 20090101

REACTIONS (2)
  - PAIN [None]
  - DRUG WITHDRAWAL SYNDROME [None]
